FAERS Safety Report 6789703-1 (Version None)
Quarter: 2010Q2

REPORT INFORMATION
  Report Type: 
  Country: None (occurrence: None)
  Receive Date: 20100624
  Receipt Date: 20090721
  Transmission Date: 20101027
  Serious: Yes (Other)
  Sender: FDA-Public Use
  Company Number: US-ASTRAZENECA-2007UW05909

PATIENT
  Age: 673 Month
  Sex: Female
  Weight: 72.1 kg

DRUGS (9)
  1. SEROQUEL [Suspect]
     Route: 048
     Dates: start: 20040805
  2. STARLIX [Concomitant]
     Indication: HYPERGLYCAEMIA
     Dosage: 120 A.C. SUPPER
     Dates: start: 20080101
  3. NEURONTIN [Concomitant]
     Indication: NEUROPATHY PERIPHERAL
     Dates: start: 20040805
  4. CARDIZEM [Concomitant]
     Indication: HYPERTENSION
     Dates: start: 20040805
  5. ZOLOFT [Concomitant]
     Indication: ANXIETY
  6. ZOLOFT [Concomitant]
     Indication: DEPRESSION
  7. FOSAMAX [Concomitant]
     Indication: OSTEOPOROSIS
     Dates: start: 20040401
  8. LASIX [Concomitant]
     Dosage: 20 MGS DAILY PRN
     Dates: start: 20040805
  9. PRILOSEC [Concomitant]
     Dates: start: 20040805

REACTIONS (5)
  - KETOACIDOSIS [None]
  - NEUROPATHY PERIPHERAL [None]
  - PANCREATITIS [None]
  - RETINOPATHY [None]
  - TYPE 2 DIABETES MELLITUS [None]
